FAERS Safety Report 21599728 (Version 3)
Quarter: 2023Q1

REPORT INFORMATION
  Report Type: Report from Study
  Country: US (occurrence: US)
  Receive Date: 20221115
  Receipt Date: 20230216
  Transmission Date: 20230418
  Serious: No
  Sender: FDA-Public Use
  Company Number: US-002147023-NVSC2022US254314

PATIENT
  Sex: Female

DRUGS (1)
  1. COSENTYX [Suspect]
     Active Substance: SECUKINUMAB
     Indication: Psoriasis
     Dosage: 300 MG, QMO
     Route: 058
     Dates: start: 202107

REACTIONS (7)
  - Acne [Unknown]
  - Alopecia [Unknown]
  - Joint swelling [Unknown]
  - Arthralgia [Unknown]
  - Psoriasis [Unknown]
  - Erythema [Unknown]
  - Pruritus [Recovering/Resolving]
